FAERS Safety Report 25992840 (Version 1)
Quarter: 2025Q4

REPORT INFORMATION
  Report Type: Spontaneous
  Country: AU (occurrence: AU)
  Receive Date: 20251103
  Receipt Date: 20251103
  Transmission Date: 20260118
  Serious: Yes (Other)
  Sender: TEVA
  Company Number: AU-TEVA-VS-3387699

PATIENT

DRUGS (1)
  1. RABEPRAZOLE [Suspect]
     Active Substance: RABEPRAZOLE
     Indication: Product used for unknown indication
     Route: 065

REACTIONS (3)
  - Renal injury [Unknown]
  - Gastrooesophageal reflux disease [Unknown]
  - Vomiting [Unknown]
